FAERS Safety Report 14786183 (Version 1)
Quarter: 2018Q2

REPORT INFORMATION
  Report Type: Spontaneous
  Country: GB (occurrence: GB)
  Receive Date: 20180420
  Receipt Date: 20180420
  Transmission Date: 20180711
  Serious: Yes (Hospitalization)
  Sender: FDA-Public Use
  Company Number: PHHY2017GB202468

PATIENT
  Sex: Male

DRUGS (1)
  1. COCODAMOL [Suspect]
     Active Substance: ACETAMINOPHEN\CODEINE PHOSPHATE
     Indication: LUMBAR SPINAL STENOSIS
     Route: 065

REACTIONS (8)
  - Abdominal pain upper [Unknown]
  - Vomiting [Unknown]
  - Dehydration [Unknown]
  - Hyperhidrosis [Unknown]
  - Feeling cold [Unknown]
  - Eructation [Unknown]
  - Chills [Unknown]
  - Dizziness [Unknown]

NARRATIVE: CASE EVENT DATE: 20171121
